FAERS Safety Report 7320960-9 (Version None)
Quarter: 2011Q1

REPORT INFORMATION
  Report Type: 
  Country: None (occurrence: None)
  Receive Date: 20110228
  Receipt Date: 20110217
  Transmission Date: 20110831
  Serious: Yes (Death, Hospitalization)
  Sender: FDA-Public Use
  Company Number: JP-JNJFOC-20110102047

PATIENT
  Age: 48 Year
  Sex: Female
  Weight: 43 kg

DRUGS (12)
  1. SELBEX [Concomitant]
     Route: 048
  2. DEPAS [Concomitant]
     Route: 048
  3. OXAROL [Concomitant]
     Indication: PSORIATIC ARTHROPATHY
     Route: 065
  4. HYDROCORTISONE BUTYRATE [Concomitant]
     Indication: PSORIATIC ARTHROPATHY
     Route: 065
  5. ANTEBATE [Concomitant]
     Indication: PSORIATIC ARTHROPATHY
     Route: 065
  6. REMICADE [Suspect]
     Indication: PSORIATIC ARTHROPATHY
     Route: 042
  7. REMICADE [Suspect]
     Dosage: 3RD DOSE
     Route: 042
  8. DEPAS [Concomitant]
     Route: 048
  9. SELBEX [Concomitant]
     Route: 048
  10. OLMETEC [Concomitant]
     Indication: HYPERTENSION
     Route: 048
  11. REMICADE [Suspect]
     Route: 042
  12. PREDNISOLONE [Concomitant]
     Route: 048

REACTIONS (10)
  - ASCITES [None]
  - DRUG ERUPTION [None]
  - HISTIOCYTOSIS HAEMATOPHAGIC [None]
  - RENAL DISORDER [None]
  - PYREXIA [None]
  - HEPATITIS C [None]
  - CELLULITIS [None]
  - MULTI-ORGAN FAILURE [None]
  - LIVER DISORDER [None]
  - PNEUMOCYSTIS JIROVECI PNEUMONIA [None]
